FAERS Safety Report 7314305-8 (Version None)
Quarter: 2011Q1

REPORT INFORMATION
  Report Type: 
  Country: None (occurrence: None)
  Receive Date: 20110225
  Receipt Date: 20100730
  Transmission Date: 20110831
  Serious: No
  Sender: FDA-Public Use
  Company Number: US-MYLANLABS-2010S1012624

PATIENT
  Age: 14 Year
  Sex: Female
  Weight: 72.3 kg

DRUGS (10)
  1. ZYRTEC [Concomitant]
  2. DESONIDE [Concomitant]
     Route: 061
     Dates: start: 20100407
  3. FLONASE [Concomitant]
  4. AMNESTEEM [Suspect]
     Dates: start: 20100201, end: 20100721
  5. ANTI-ACNE PREPARATIONS FOR TOPICAL USE [Concomitant]
  6. EMOLLIENTS AND PROTECTIVES [Concomitant]
     Dates: start: 20100407
  7. MAXAIR [Concomitant]
  8. AMNESTEEM [Suspect]
     Indication: ACNE
     Dates: start: 20100201, end: 20100201
  9. AMNESTEEM [Suspect]
     Dates: start: 20100201, end: 20100201
  10. AMNESTEEM [Suspect]
     Dates: start: 20100201, end: 20100721

REACTIONS (4)
  - CHEST PAIN [None]
  - LYMPHADENOPATHY [None]
  - HEADACHE [None]
  - PAPILLOEDEMA [None]
